FAERS Safety Report 19646630 (Version 1)
Quarter: 2021Q3

REPORT INFORMATION
  Report Type: Spontaneous
  Country: IT (occurrence: IT)
  Receive Date: 20210802
  Receipt Date: 20210802
  Transmission Date: 20211014
  Serious: No
  Sender: FDA-Public Use
  Company Number: IT-LUPIN PHARMACEUTICALS INC.-2021-13426

PATIENT
  Age: 30 Year
  Sex: Female

DRUGS (13)
  1. MIDAZOLAM. [Suspect]
     Active Substance: MIDAZOLAM
     Indication: PREMEDICATION
     Dosage: 2 MILLIGRAM
     Route: 042
  2. ROCURONIUM [Suspect]
     Active Substance: ROCURONIUM BROMIDE
     Indication: INDUCTION OF ANAESTHESIA
     Dosage: 0.6 MILLIGRAM/KILOGRAM
     Route: 065
  3. SALINE [Suspect]
     Active Substance: SODIUM CHLORIDE
     Indication: PROPHYLAXIS
     Dosage: UNK,AMNIOINFUSION OF PRE?HEATED SODIUM CHLORIDE SOLUTION
     Route: 065
  4. NITROGLYCERIN. [Suspect]
     Active Substance: NITROGLYCERIN
     Dosage: 1 MICROGRAM/KILOGRAM
     Route: 065
  5. PANTOPRAZOLE [Suspect]
     Active Substance: PANTOPRAZOLE
     Indication: PREMEDICATION
     Dosage: 40 MILLIGRAM
     Route: 042
  6. SEVOFLURANE. [Suspect]
     Active Substance: SEVOFLURANE
     Indication: ANAESTHESIA
     Dosage: UNK (DOSE ADJUSTED TO MINIMUM ALVEOLAR CONCENTRATION (MAC) OF 1)
  7. NITROGLYCERIN. [Suspect]
     Active Substance: NITROGLYCERIN
     Indication: UTERINE ATONY
     Dosage: 100 MILLIGRAM (ADMINISTERED TWO TIMES) (ROUTE: BOLUS)
     Route: 065
  8. METOCLOPRAMIDE. [Suspect]
     Active Substance: METOCLOPRAMIDE
     Indication: PREMEDICATION
     Dosage: 10 MILLIGRAM
     Route: 042
  9. THIOPENTAL [Suspect]
     Active Substance: THIOPENTAL
     Indication: INDUCTION OF ANAESTHESIA
     Dosage: 4 TO 6 MG/KG
     Route: 065
  10. PHENYLEPHRINE [Suspect]
     Active Substance: PHENYLEPHRINE HYDROCHLORIDE
     Indication: DRUG THERAPY
     Dosage: 0.5 MICROGRAM/KILOGRAM
     Route: 065
  11. REMIFENTANIL [Suspect]
     Active Substance: REMIFENTANIL
     Indication: ANAESTHESIA
     Dosage: 0.1 TO 0.3 MCG/KG/MIN
     Route: 042
  12. OXYTOCIN. [Suspect]
     Active Substance: OXYTOCIN
     Indication: DRUG THERAPY
     Dosage: UNK
     Route: 065
  13. FENTANYL. [Suspect]
     Active Substance: FENTANYL
     Indication: INDUCTION OF ANAESTHESIA
     Dosage: 1 MICROGRAM/KILOGRAM
     Route: 065

REACTIONS (1)
  - Maternal exposure during delivery [Unknown]
